FAERS Safety Report 20016322 (Version 1)
Quarter: 2021Q4

REPORT INFORMATION
  Report Type: Spontaneous
  Country: US (occurrence: None)
  Receive Date: 20211103
  Receipt Date: 20211103
  Transmission Date: 20220303
  Serious: Yes (Hospitalization)
  Sender: FDA-Public Use
  Company Number: None

PATIENT
  Age: 56 Year
  Sex: Female

DRUGS (1)
  1. DEFERASIROX [Suspect]
     Active Substance: DEFERASIROX
     Dosage: FREQUENCY : DAILY;?
     Route: 048
     Dates: start: 202110

REACTIONS (6)
  - Urinary tract infection [None]
  - Diarrhoea [None]
  - Headache [None]
  - Nausea [None]
  - Dyspepsia [None]
  - Pain in extremity [None]

NARRATIVE: CASE EVENT DATE: 20211101
